FAERS Safety Report 13005185 (Version 1)
Quarter: 2016Q4

REPORT INFORMATION
  Report Type: Spontaneous
  Country: US (occurrence: US)
  Receive Date: 20161207
  Receipt Date: 20161207
  Transmission Date: 20170207
  Serious: No
  Sender: FDA-Public Use
  Company Number: US-SHIRE-US201618007

PATIENT
  Sex: Female
  Weight: 45.35 kg

DRUGS (3)
  1. XALATAN [Concomitant]
     Active Substance: LATANOPROST
     Dosage: 1 GTT, 1X/DAY:QD
     Route: 047
     Dates: start: 2011
  2. COSOPT [Concomitant]
     Active Substance: DORZOLAMIDE HYDROCHLORIDE\TIMOLOL MALEATE
     Indication: GLAUCOMA
     Dosage: 2 GTT, 2X/DAY:BID
     Route: 047
     Dates: start: 2011
  3. XIIDRA [Suspect]
     Active Substance: LIFITEGRAST
     Indication: DRY EYE
     Dosage: 1 GTT, 2X/DAY:BID (BOTH EYES)
     Route: 047
     Dates: start: 201611

REACTIONS (2)
  - Eye discharge [Not Recovered/Not Resolved]
  - Instillation site reaction [Not Recovered/Not Resolved]
